FAERS Safety Report 4660204-X (Version None)
Quarter: 2005Q2

REPORT INFORMATION
  Report Type: 
  Country: None (occurrence: None)
  Receive Date: 20050505
  Receipt Date: 20050110
  Transmission Date: 20051028
  Serious: No
  Sender: FDA-Public Use
  Company Number: 2005USFACT00231

PATIENT
  Age: 68 Year
  Sex: Male
  Weight: 77.1 kg

DRUGS (2)
  1. FACTIVE [Suspect]
     Indication: RESPIRATORY TRACT INFECTION BACTERIAL
     Dosage: 320.00 MG, QD, ORAL
     Route: 048
     Dates: start: 20050104, end: 20050109
  2. FACTIVE [Suspect]
     Dosage: 320.00 MG, QD, ORAL
     Route: 048
     Dates: start: 20050106, end: 20050109

REACTIONS (4)
  - ASTHENIA [None]
  - DYSGEUSIA [None]
  - HYPERHIDROSIS [None]
  - TREMOR [None]
